FAERS Safety Report 8535584-5 (Version None)
Quarter: 2012Q2

REPORT INFORMATION
  Report Type: 
  Country: None (occurrence: None)
  Receive Date: 20120412
  Receipt Date: 20100222
  Transmission Date: 20120825
  Serious: Yes (Hospitalization)
  Sender: FDA-Public Use
  Company Number: PHHY2010US10479

PATIENT
  Age: 52 Year
  Sex: Female

DRUGS (3)
  1. ATIVAN [Suspect]
  2. DESYREL [Suspect]
  3. CLOZARIL [Suspect]
     Dosage: 1 DF MANE, 3 DF NOCTE

REACTIONS (1)
  - INSOMNIA [None]
